FAERS Safety Report 6658177-3 (Version None)
Quarter: 2010Q2

REPORT INFORMATION
  Report Type: 
  Country: None (occurrence: None)
  Receive Date: 20100330
  Receipt Date: 20100324
  Transmission Date: 20101027
  Serious: Yes (Hospitalization)
  Sender: FDA-Public Use
  Company Number: B0642601A

PATIENT
  Sex: Female

DRUGS (10)
  1. AUGMENTIN '125' [Suspect]
     Indication: BRONCHITIS
     Dosage: 3G PER DAY
     Route: 048
     Dates: start: 20100204, end: 20100214
  2. RULID [Suspect]
     Indication: BRONCHITIS
     Dosage: 150MG TWICE PER DAY
     Route: 048
     Dates: start: 20100204, end: 20100214
  3. BISOPROLOL FUMARATE [Suspect]
     Dosage: 5MG PER DAY
     Route: 048
     Dates: start: 20100205, end: 20100301
  4. RAMIPRIL [Suspect]
     Route: 048
     Dates: start: 20100205, end: 20100226
  5. ADANCOR [Concomitant]
     Route: 065
  6. IMOVANE [Concomitant]
     Route: 065
  7. KARDEGIC [Concomitant]
     Route: 065
  8. LASIX [Concomitant]
     Route: 065
  9. PREVISCAN [Concomitant]
     Route: 065
  10. DIFFU K [Concomitant]
     Route: 065

REACTIONS (18)
  - ACUTE GENERALISED EXANTHEMATOUS PUSTULOSIS [None]
  - BLISTER [None]
  - BREAST OEDEMA [None]
  - CONDITION AGGRAVATED [None]
  - DERMATITIS EXFOLIATIVE [None]
  - EYE OEDEMA [None]
  - IMPETIGO [None]
  - INFLAMMATION [None]
  - LEUKOCYTOSIS [None]
  - LIP OEDEMA [None]
  - OEDEMA PERIPHERAL [None]
  - PAIN [None]
  - RASH ERYTHEMATOUS [None]
  - RASH PAPULAR [None]
  - RASH PUSTULAR [None]
  - SKIN EXFOLIATION [None]
  - SKIN LESION [None]
  - SKIN PLAQUE [None]
